FAERS Safety Report 9036214 (Version 3)
Quarter: 2013Q1

REPORT INFORMATION
  Report Type: Spontaneous
  Country: FR (occurrence: FR)
  Receive Date: 20130129
  Receipt Date: 20130319
  Transmission Date: 20140127
  Serious: Yes (Other)
  Sender: FDA-Public Use
  Company Number: PHHY2013FR008119

PATIENT
  Age: 86 Year
  Sex: Female

DRUGS (12)
  1. ACLASTA [Suspect]
     Indication: OSTEOPOROTIC FRACTURE
     Dosage: UNK
     Route: 042
     Dates: start: 2009
  2. ACLASTA [Suspect]
     Dosage: UNK
     Route: 042
     Dates: start: 2010
  3. ZOMETA [Suspect]
     Indication: OSTEOPOROTIC FRACTURE
     Dosage: UNK
     Dates: start: 2007
  4. ZOMETA [Suspect]
     Dosage: UNK
     Dates: start: 2008
  5. BISOPROLOL [Concomitant]
  6. FUROSEMIDE [Concomitant]
  7. AMIODARONE [Concomitant]
  8. LANSOPRAZOLE [Concomitant]
  9. COVERSYL [Concomitant]
  10. PREVISCAN [Concomitant]
  11. EXJADE [Concomitant]
  12. KALEORID [Concomitant]

REACTIONS (9)
  - Medical device site reaction [Unknown]
  - Osteonecrosis of jaw [Not Recovered/Not Resolved]
  - Gingival injury [Unknown]
  - Oedema mouth [Unknown]
  - Local swelling [Unknown]
  - Osteolysis [Unknown]
  - Pain [Unknown]
  - Exposed bone in jaw [Unknown]
  - Oral discomfort [Unknown]
